FAERS Safety Report 9696623 (Version 2)
Quarter: 2014Q1

REPORT INFORMATION
  Report Type: Spontaneous
  Country: GB (occurrence: GB)
  Receive Date: 20131119
  Receipt Date: 20140227
  Transmission Date: 20141002
  Serious: Yes (Other)
  Sender: FDA-Public Use
  Company Number: GB-BAXTER-2013BAX045894

PATIENT
  Age: 41 Year
  Sex: Male

DRUGS (14)
  1. FEIBA IMMUNO FACTOR VIII INHIBITOR BYPASSING FRACTION HUMAN VAPOUR HEA [Suspect]
     Indication: FACTOR VIII INHIBITION
     Dosage: IN THREE DIVIDED DOSES
     Route: 065
  2. FEIBA IMMUNO FACTOR VIII INHIBITOR BYPASSING FRACTION HUMAN VAPOUR HEA [Suspect]
     Dosage: 100-150 U/KG IN TWO DIVIDED DOSES
     Route: 065
  3. FEIBA IMMUNO FACTOR VIII INHIBITOR BYPASSING FRACTION HUMAN VAPOUR HEA [Suspect]
     Route: 065
  4. FEIBA IMMUNO FACTOR VIII INHIBITOR BYPASSING FRACTION HUMAN VAPOUR HEA [Suspect]
     Route: 065
  5. RFVIIA [Suspect]
     Indication: FACTOR VIII INHIBITION
     Route: 065
  6. RFVIIA [Suspect]
     Indication: HAEMORRHAGE
     Route: 065
  7. RFVIIA [Suspect]
     Route: 065
  8. RFVIIA [Suspect]
     Route: 065
  9. RFVIIA [Suspect]
     Route: 065
  10. RFVIIA [Suspect]
     Route: 065
  11. RFVIIA [Suspect]
     Route: 065
  12. RFVIIA [Suspect]
     Route: 065
  13. RFVIIA [Suspect]
     Route: 065
  14. TRANEXAMIC ACID [Suspect]
     Indication: FACTOR VIII INHIBITION
     Route: 065

REACTIONS (1)
  - Muscle haemorrhage [Recovered/Resolved]
